FAERS Safety Report 14513507 (Version 2)
Quarter: 2018Q1

REPORT INFORMATION
  Report Type: Spontaneous
  Country: CA (occurrence: CA)
  Receive Date: 20180209
  Receipt Date: 20180209
  Transmission Date: 20180509
  Serious: Yes (Other)
  Sender: FDA-Public Use
  Company Number: CA-009507513-1801CAN014635

PATIENT
  Age: 49 Year
  Sex: Male

DRUGS (4)
  1. ONCOTICE [Suspect]
     Active Substance: BACILLUS CALMETTE-GUERIN SUBSTRAIN TICE LIVE ANTIGEN
     Dosage: BCG MAINTENANCE
     Route: 043
  2. ONCOTICE [Suspect]
     Active Substance: BACILLUS CALMETTE-GUERIN SUBSTRAIN TICE LIVE ANTIGEN
     Indication: BLADDER CANCER STAGE 0, WITH CANCER IN SITU
     Dosage: FULL-DOSE WITH A PLAN FOR THREE YEARS? MAINTENANCE.
     Route: 043
  3. ONCOTICE [Suspect]
     Active Substance: BACILLUS CALMETTE-GUERIN SUBSTRAIN TICE LIVE ANTIGEN
     Dosage: HE RESUMED FULL DOSE FOR DOSES 4, 5, AND 6.
     Route: 043
  4. ONCOTICE [Suspect]
     Active Substance: BACILLUS CALMETTE-GUERIN SUBSTRAIN TICE LIVE ANTIGEN
     Dosage: GIVEN AT 1/10 DOSE
     Route: 043

REACTIONS (3)
  - Reiter^s syndrome [Recovered/Resolved]
  - Cystitis [Unknown]
  - Urinary tract infection [Unknown]
